FAERS Safety Report 21864117 (Version 3)
Quarter: 2023Q1

REPORT INFORMATION
  Report Type: Spontaneous
  Country: US (occurrence: US)
  Receive Date: 20230116
  Receipt Date: 20230323
  Transmission Date: 20230418
  Serious: Yes (Hospitalization, Other)
  Sender: FDA-Public Use
  Company Number: US-BIOGEN-2022BI01177663

PATIENT
  Sex: Male

DRUGS (1)
  1. TYSABRI [Suspect]
     Active Substance: NATALIZUMAB
     Indication: Multiple sclerosis
     Route: 050
     Dates: start: 20170713

REACTIONS (5)
  - Sepsis [Recovered/Resolved]
  - Cystitis [Unknown]
  - Haematological infection [Recovered/Resolved]
  - Aphasia [Not Recovered/Not Resolved]
  - Nail disorder [Not Recovered/Not Resolved]
